FAERS Safety Report 8774137 (Version 1)
Quarter: 2012Q4

REPORT INFORMATION
  Report Type: 
  Country: SE (occurrence: SE)
  Receive Date: 20120907
  Receipt Date: 20120907
  Transmission Date: 20130627
  Serious: Yes (Life-Threatening)
  Sender: FDA-Public Use
  Company Number: SE-ASTRAZENECA-2012SE69259

PATIENT
  Age: 16 Year
  Sex: Male

DRUGS (2)
  1. SYMBICORT [Suspect]
     Indication: ASTHMA
     Route: 055
  2. BRICANYL [Suspect]
     Indication: ASTHMA
     Route: 065

REACTIONS (1)
  - Cardiac arrest [Recovering/Resolving]
